FAERS Safety Report 20166940 (Version 1)
Quarter: 2021Q4

REPORT INFORMATION
  Report Type: Spontaneous
  Country: CH (occurrence: CH)
  Receive Date: 20211209
  Receipt Date: 20211209
  Transmission Date: 20220303
  Serious: Yes (Life-Threatening, Other)
  Sender: FDA-Public Use
  Company Number: None

PATIENT
  Age: 42 Year
  Sex: Female

DRUGS (2)
  1. FELDENE [Suspect]
     Active Substance: PIROXICAM
     Dosage: 20 MG
  2. MIRENA [Suspect]
     Active Substance: LEVONORGESTREL
     Dosage: 52 MG
     Route: 015
     Dates: start: 20211108, end: 20211109

REACTIONS (5)
  - Angioedema [Unknown]
  - Hypersensitivity [Unknown]
  - Malaise [Unknown]
  - Pharyngeal swelling [Unknown]
  - Rash [Unknown]

NARRATIVE: CASE EVENT DATE: 20211109
